FAERS Safety Report 26127638 (Version 1)
Quarter: 2025Q4

REPORT INFORMATION
  Report Type: Spontaneous
  Country: US (occurrence: US)
  Receive Date: 20251206
  Receipt Date: 20251206
  Transmission Date: 20260118
  Serious: Yes (Life-Threatening, Hospitalization, Other)
  Sender: HETERO
  Company Number: US-HETERO-HET2025US07401

PATIENT
  Age: 15 Year
  Sex: Female

DRUGS (1)
  1. NAPROXEN [Suspect]
     Active Substance: NAPROXEN
     Indication: Product used for unknown indication
     Dosage: (UP TO 200 NAPROXEN TABLETS UNACCOUNTED FOR)
     Route: 065

REACTIONS (12)
  - Suicide attempt [Unknown]
  - Respiratory failure [Recovered/Resolved]
  - Seizure like phenomena [Recovered/Resolved]
  - Renal failure [Recovered/Resolved]
  - Lactic acidosis [Recovered/Resolved]
  - Electrocardiogram QT prolonged [Recovered/Resolved]
  - Gastrointestinal haemorrhage [Recovered/Resolved]
  - Depressed level of consciousness [Recovered/Resolved]
  - Coagulopathy [Recovered/Resolved]
  - Acidosis [Recovered/Resolved]
  - Transaminases abnormal [Recovered/Resolved]
  - Intentional overdose [Unknown]
